FAERS Safety Report 16392574 (Version 2)
Quarter: 2019Q2

REPORT INFORMATION
  Report Type: Spontaneous
  Country: CN (occurrence: CN)
  Receive Date: 20190605
  Receipt Date: 20190613
  Transmission Date: 20190711
  Serious: Yes (Hospitalization, Other)
  Sender: FDA-Public Use
  Company Number: CN-ASTRAZENECA-2019SE81172

PATIENT
  Age: 52 Year
  Sex: Male

DRUGS (1)
  1. SYMBICORT [Suspect]
     Active Substance: BUDESONIDE\FORMOTEROL FUMARATE DIHYDRATE
     Indication: ASTHMA
     Dosage: (160 UG 4.5 UG) ONE INHALATION, BID
     Route: 055

REACTIONS (2)
  - Pulmonary embolism [Not Recovered/Not Resolved]
  - Lung disorder [Unknown]
